FAERS Safety Report 19932414 (Version 1)
Quarter: 2021Q4

REPORT INFORMATION
  Report Type: Spontaneous
  Country: US (occurrence: US)
  Receive Date: 20211008
  Receipt Date: 20211008
  Transmission Date: 20220303
  Serious: Yes (Other)
  Sender: FDA-Public Use
  Company Number: US-PFIZER INC-202101199044

PATIENT
  Age: 42 Year
  Sex: Female

DRUGS (3)
  1. CYTARABINE [Suspect]
     Active Substance: CYTARABINE
     Indication: Acute monocytic leukaemia
     Dosage: UNK
  2. DAUNORUBICIN [Suspect]
     Active Substance: DAUNORUBICIN
     Indication: Acute monocytic leukaemia
     Dosage: UNK
  3. MIDOSTAURIN [Suspect]
     Active Substance: MIDOSTAURIN
     Indication: Acute monocytic leukaemia
     Dosage: UNK

REACTIONS (1)
  - Hidradenitis [Recovered/Resolved]
